FAERS Safety Report 24781629 (Version 2)
Quarter: 2025Q1

REPORT INFORMATION
  Report Type: Spontaneous
  Country: JP (occurrence: JP)
  Receive Date: 20241227
  Receipt Date: 20250331
  Transmission Date: 20250408
  Serious: Yes (Death, Other)
  Sender: ASTELLAS
  Company Number: JP-ASTELLAS-2024-AER-006612

PATIENT
  Age: 77 Year
  Sex: Male

DRUGS (1)
  1. PADCEV [Suspect]
     Active Substance: ENFORTUMAB VEDOTIN-EJFV
     Indication: Product used for unknown indication
     Route: 042
     Dates: end: 20241002

REACTIONS (3)
  - Febrile neutropenia [Recovered/Resolved]
  - Disease progression [Fatal]
  - Dry skin [Recovered/Resolved]

NARRATIVE: CASE EVENT DATE: 20240903
